FAERS Safety Report 19174088 (Version 5)
Quarter: 2021Q3

REPORT INFORMATION
  Report Type: Spontaneous
  Country: US (occurrence: US)
  Receive Date: 20210423
  Receipt Date: 20210901
  Transmission Date: 20211014
  Serious: No
  Sender: FDA-Public Use
  Company Number: US-PFIZER INC-2021354365

PATIENT
  Age: 14 Year
  Sex: Male

DRUGS (1)
  1. GENOTROPIN [Suspect]
     Active Substance: SOMATROPIN
     Dosage: 3 MG, DAILY (6DAYS/WK)
     Dates: start: 202102

REACTIONS (6)
  - Device failure [Unknown]
  - Device breakage [Unknown]
  - Drug dose omission by device [Unknown]
  - Device use issue [Unknown]
  - Device information output issue [Unknown]
  - Device mechanical issue [Unknown]
